FAERS Safety Report 5094337-3 (Version None)
Quarter: 2006Q3

REPORT INFORMATION
  Report Type: 
  Country: None (occurrence: None)
  Receive Date: 20060830
  Receipt Date: 20060810
  Transmission Date: 20061208
  Serious: Yes (Hospitalization)
  Sender: FDA-Public Use
  Company Number: CIP06001944

PATIENT
  Age: 61 Year
  Sex: Female

DRUGS (10)
  1. RISEDRONATE SODIUM [Suspect]
     Dosage: 2.5 MG DAILY, ORAL
     Route: 048
     Dates: start: 20060509, end: 20060801
  2. LANSOPRAZOLE [Suspect]
     Indication: REFLUX OESOPHAGITIS
     Dosage: 30 MG, DAILY, ORAL
     Route: 048
     Dates: start: 20060518, end: 20060801
  3. OSTELUC(ETODOLAC) [Suspect]
     Indication: ARTHRALGIA
     Dosage: 400 MG, DAILY, ORAL
     Route: 048
     Dates: start: 20060518, end: 20060801
  4. PREDNISOLONE [Concomitant]
  5. RITUXAN [Concomitant]
  6. CYCLOPHOSPHAMIDE [Concomitant]
  7. DOXORUBICIN HCL [Concomitant]
  8. ONCOVIN [Concomitant]
  9. NEU-UP (NARTOGRASTIM) [Concomitant]
  10. NEUTROGIN (LENOGRASTIM) [Concomitant]

REACTIONS (9)
  - AGRANULOCYTOSIS [None]
  - ARTHRALGIA [None]
  - BACK PAIN [None]
  - NEUTROPENIA [None]
  - NEUTROPHIL PERCENTAGE INCREASED [None]
  - NON-HODGKIN'S LYMPHOMA [None]
  - PYREXIA [None]
  - REFLUX OESOPHAGITIS [None]
  - WHITE BLOOD CELL COUNT DECREASED [None]
